FAERS Safety Report 8590263-3 (Version None)
Quarter: 2012Q3

REPORT INFORMATION
  Report Type: 
  Country: None (occurrence: None)
  Receive Date: 20120813
  Receipt Date: 20120808
  Transmission Date: 20120928
  Serious: Yes (Other)
  Sender: FDA-Public Use
  Company Number: US-GLAXOSMITHKLINE-A0965921A

PATIENT
  Age: 53 Year
  Sex: Male
  Weight: 71.8 kg

DRUGS (5)
  1. XANAX [Concomitant]
  2. FLUTICASONE PROPIONATE [Suspect]
     Indication: CHRONIC OBSTRUCTIVE PULMONARY DISEASE
     Route: 055
  3. XOPENEX [Concomitant]
     Indication: PRODUCT USED FOR UNKNOWN INDICATION
  4. ALBUTEROL [Suspect]
     Indication: PRODUCT USED FOR UNKNOWN INDICATION
     Route: 055
  5. ROFLUMILAST [Concomitant]

REACTIONS (13)
  - GASTRIC ULCER [None]
  - DYSPNOEA EXERTIONAL [None]
  - ABDOMINAL PAIN UPPER [None]
  - DYSPEPSIA [None]
  - DECREASED APPETITE [None]
  - ANXIETY [None]
  - BURNOUT SYNDROME [None]
  - DEPRESSION [None]
  - DIARRHOEA [None]
  - ABDOMINAL HERNIA [None]
  - ABDOMINAL DISTENSION [None]
  - FATIGUE [None]
  - GENERAL PHYSICAL HEALTH DETERIORATION [None]
